FAERS Safety Report 23400733 (Version 2)
Quarter: 2024Q1

REPORT INFORMATION
  Report Type: Spontaneous
  Country: JP (occurrence: JP)
  Receive Date: 20240115
  Receipt Date: 20240320
  Transmission Date: 20240410
  Serious: Yes (Other)
  Sender: FDA-Public Use
  Company Number: JP-SAKK-2024SA011117AA

PATIENT
  Age: 79 Year
  Sex: Female

DRUGS (1)
  1. KEVZARA [Suspect]
     Active Substance: SARILUMAB
     Indication: Product used for unknown indication
     Dosage: UNK
     Route: 058

REACTIONS (8)
  - Gastric cancer stage I [Unknown]
  - Feeding disorder [Unknown]
  - White blood cell count increased [Unknown]
  - Memory impairment [Unknown]
  - Vomiting [Unknown]
  - Diarrhoea [Unknown]
  - Abdominal discomfort [Unknown]
  - Blood pressure increased [Unknown]

NARRATIVE: CASE EVENT DATE: 20210101
